FAERS Safety Report 17268026 (Version 2)
Quarter: 2020Q1

REPORT INFORMATION
  Report Type: Spontaneous
  Country: US (occurrence: US)
  Receive Date: 20200114
  Receipt Date: 20200131
  Transmission Date: 20200409
  Serious: No
  Sender: FDA-Public Use
  Company Number: US-HORIZON-KRY-0049-2020

PATIENT
  Age: 59 Year
  Sex: Male

DRUGS (2)
  1. COLCHICINE. [Concomitant]
     Active Substance: COLCHICINE
     Dosage: PO BID
  2. KRYSTEXXA [Suspect]
     Active Substance: PEGLOTICASE
     Indication: GOUT
     Dosage: EVERY 2 WEEKS
     Route: 042
     Dates: start: 2019

REACTIONS (4)
  - Blood uric acid increased [Recovered/Resolved]
  - Inappropriate schedule of product administration [Unknown]
  - Blood uric acid increased [Unknown]
  - Intentional dose omission [Unknown]
